FAERS Safety Report 18964684 (Version 1)
Quarter: 2021Q1

REPORT INFORMATION
  Report Type: Spontaneous
  Country: US (occurrence: US)
  Receive Date: 20210303
  Receipt Date: 20210303
  Transmission Date: 20210420
  Serious: No
  Sender: FDA-Public Use
  Company Number: US-AMNEAL PHARMACEUTICALS-2020-AMRX-04165

PATIENT
  Sex: Male

DRUGS (6)
  1. MIDODRINE [Concomitant]
     Active Substance: MIDODRINE
     Indication: HYPOTENSION
     Dosage: UNK
     Route: 065
  2. RYTARY [Suspect]
     Active Substance: CARBIDOPA\LEVODOPA
     Indication: PARKINSON^S DISEASE
     Dosage: 4 CAPSULES, TID IN MORNING
     Route: 048
     Dates: start: 2020, end: 20201229
  3. CLONAZEPAM. [Concomitant]
     Active Substance: CLONAZEPAM
     Indication: SLEEP DISORDER
     Dosage: HALF PILL
     Route: 065
  4. RYTARY [Suspect]
     Active Substance: CARBIDOPA\LEVODOPA
     Dosage: 3 CAPSULES, TID IN EVENING
     Route: 048
     Dates: start: 2020, end: 20201229
  5. INBRIJA [Concomitant]
     Active Substance: LEVODOPA
     Indication: ON AND OFF PHENOMENON
     Dosage: UP TO 5 TIMES A DAY AS NEEDED
     Route: 065
  6. RYTARY [Suspect]
     Active Substance: CARBIDOPA\LEVODOPA
     Dosage: 4 CAPSULES, 5X/DAY (6AM?10PM?2PM?6PM?10PM)
     Route: 048
     Dates: start: 20210104

REACTIONS (3)
  - Treatment noncompliance [Unknown]
  - Therapeutic product effect decreased [Unknown]
  - Prescribed overdose [Unknown]

NARRATIVE: CASE EVENT DATE: 2020
